FAERS Safety Report 5208988-6 (Version None)
Quarter: 2007Q1

REPORT INFORMATION
  Report Type: 
  Country: None (occurrence: None)
  Receive Date: 20070116
  Receipt Date: 20070108
  Transmission Date: 20070707
  Serious: Yes (Hospitalization)
  Sender: FDA-Public Use
  Company Number: FR-GLAXOSMITHKLINE-B0453672A

PATIENT
  Age: 76 Year
  Sex: Female
  Weight: 140 kg

DRUGS (15)
  1. AUGMENTIN '125' [Suspect]
     Indication: ERYSIPELAS
     Dosage: 3G UNKNOWN
     Route: 048
     Dates: start: 20061028, end: 20061107
  2. PYOSTACINE [Suspect]
     Indication: ERYSIPELAS
     Dosage: 500MG SIX TIMES PER DAY
     Route: 048
     Dates: start: 20061026, end: 20061107
  3. PREVISCAN [Concomitant]
     Route: 065
  4. IKOREL [Concomitant]
     Dosage: 10MG PER DAY
     Route: 065
  5. CORVASAL [Concomitant]
     Dosage: 2MG PER DAY
     Route: 065
  6. FUROSEMIDE [Concomitant]
     Route: 065
  7. EUPRESSYL [Concomitant]
     Dosage: 60MG PER DAY
     Route: 065
  8. ENDOTELON [Concomitant]
     Dosage: 150MG PER DAY
     Route: 065
  9. DIAMICRON [Concomitant]
     Dosage: 80MG PER DAY
     Route: 065
  10. MEDIATOR [Concomitant]
     Dosage: 150MG PER DAY
     Route: 065
  11. SINGULAIR [Concomitant]
     Dosage: 10MG PER DAY
     Route: 065
  12. ACETAMINOPHEN [Concomitant]
     Dosage: 500MG PER DAY
     Route: 065
  13. TOPALGIC (FRANCE) [Concomitant]
     Dosage: 100MG PER DAY
     Route: 065
  14. ALLOPURINOL SODIUM [Concomitant]
     Route: 065
  15. PEVARYL [Concomitant]
     Route: 061

REACTIONS (2)
  - ACUTE GENERALISED EXANTHEMATOUS PUSTULOSIS [None]
  - DRUG ERUPTION [None]
